FAERS Safety Report 23349436 (Version 1)
Quarter: 2023Q4

REPORT INFORMATION
  Report Type: Spontaneous
  Country: US (occurrence: US)
  Receive Date: 20231229
  Receipt Date: 20231229
  Transmission Date: 20240110
  Serious: Yes (Death, Other)
  Sender: FDA-Public Use
  Company Number: US-BAXTER-2023BAX038575

PATIENT

DRUGS (2)
  1. PRISMASOL NOS [Suspect]
     Active Substance: DEXTROSE\LACTIC ACID\MAGNESIUM CL\POTASSIUM CL\SODIUM BICARBONATE\SODIUM CL
     Indication: Haemofiltration
     Dosage: AT AN UNSPECIFIED DOSE AND FREQUENCY, VIA INFUSION
     Route: 065
  2. CITRATE [Suspect]
     Active Substance: CITRIC ACID MONOHYDRATE
     Indication: Haemofiltration
     Dosage: AT AN UNSPECIFIED DOSE AND FREQUENCY, VIA INFUSION
     Route: 065

REACTIONS (4)
  - Cardiac arrest [Fatal]
  - Air embolism [Fatal]
  - Procedural complication [Unknown]
  - Device alarm issue [Unknown]

NARRATIVE: CASE EVENT DATE: 20231217
